FAERS Safety Report 15799234 (Version 4)
Quarter: 2022Q2

REPORT INFORMATION
  Report Type: Report from Study
  Country: US (occurrence: US)
  Receive Date: 20190108
  Receipt Date: 20220419
  Transmission Date: 20220721
  Serious: Yes (Other)
  Sender: FDA-Public Use
  Company Number: US-JAZZ-JPI-P-022026

PATIENT
  Age: 51 Year
  Sex: Male
  Weight: 118.18 kg

DRUGS (25)
  1. XYREM [Suspect]
     Active Substance: SODIUM OXYBATE
     Indication: Pain
     Dosage: 3 GRAM, BID
     Route: 048
     Dates: start: 20101029, end: 2010
  2. XYREM [Suspect]
     Active Substance: SODIUM OXYBATE
     Indication: Insomnia
     Dosage: UNKNOWN SINGLE DOSE
     Route: 048
     Dates: start: 2010, end: 20101201
  3. XYREM [Suspect]
     Active Substance: SODIUM OXYBATE
     Dosage: 4 GRAM, BID
     Route: 048
     Dates: start: 20101202, end: 20121008
  4. XYREM [Suspect]
     Active Substance: SODIUM OXYBATE
     Dosage: SINGLE (4 GM 1ST DOSE/3 GM 2ND DOSE)
     Route: 048
     Dates: start: 20121009
  5. XYREM [Suspect]
     Active Substance: SODIUM OXYBATE
     Dosage: SINGLE (4 GM 1ST DOSE/3-4 GM 2ND DOSE)
     Route: 048
  6. IODINE [Suspect]
     Active Substance: IODINE
     Indication: Product used for unknown indication
  7. AMPHETAMINE [Concomitant]
     Active Substance: AMPHETAMINE
  8. OXYCODONE [Concomitant]
     Active Substance: OXYCODONE
  9. LIDOCAINE [Concomitant]
     Active Substance: LIDOCAINE
  10. FENTANYL [Concomitant]
     Active Substance: FENTANYL
  11. ZANAFLEX [Concomitant]
     Active Substance: TIZANIDINE HYDROCHLORIDE
  12. TOPAMAX [Concomitant]
     Active Substance: TOPIRAMATE
  13. BACLOFEN [Concomitant]
     Active Substance: BACLOFEN
  14. OMEPRAZOLE [Concomitant]
     Active Substance: OMEPRAZOLE
  15. VALIUM [Concomitant]
     Active Substance: DIAZEPAM
  16. REMERON [Concomitant]
     Active Substance: MIRTAZAPINE
  17. FISH OIL [Concomitant]
     Active Substance: FISH OIL
  18. MELATONIN [Concomitant]
     Active Substance: MELATONIN
  19. TRILEPTAL [Concomitant]
     Active Substance: OXCARBAZEPINE
  20. CYMBALTA [Concomitant]
     Active Substance: DULOXETINE HYDROCHLORIDE
  21. AMBIEN [Concomitant]
     Active Substance: ZOLPIDEM TARTRATE
  22. PREDNISONE [Concomitant]
     Active Substance: PREDNISONE
  23. MODAFINIL [Concomitant]
     Active Substance: MODAFINIL
  24. INDOMETHACIN [Concomitant]
     Active Substance: INDOMETHACIN
  25. MS CONTIN [Concomitant]
     Active Substance: MORPHINE SULFATE

REACTIONS (21)
  - Fall [Recovered/Resolved]
  - Concussion [Recovering/Resolving]
  - Neck pain [Unknown]
  - Condition aggravated [Unknown]
  - Road traffic accident [Recovered/Resolved]
  - Injury [Not Recovered/Not Resolved]
  - Condition aggravated [Not Recovered/Not Resolved]
  - Accident [Unknown]
  - Limb injury [Unknown]
  - Balance disorder [Not Recovered/Not Resolved]
  - Accident at work [Not Recovered/Not Resolved]
  - Weight increased [Not Recovered/Not Resolved]
  - Back pain [Unknown]
  - Hypoaesthesia [Not Recovered/Not Resolved]
  - Vertigo [Unknown]
  - Neuralgia [Not Recovered/Not Resolved]
  - Arthralgia [Not Recovered/Not Resolved]
  - Head injury [Unknown]
  - Pain [Unknown]
  - Iodine allergy [Unknown]
  - Pre-existing condition improved [Unknown]

NARRATIVE: CASE EVENT DATE: 20111001
